FAERS Safety Report 13484072 (Version 1)
Quarter: 2017Q2

REPORT INFORMATION
  Report Type: Spontaneous
  Country: IT (occurrence: IT)
  Receive Date: 20170426
  Receipt Date: 20170426
  Transmission Date: 20170830
  Serious: Yes (Hospitalization, Other)
  Sender: FDA-Public Use
  Company Number: IT-ALVOGEN-2017-ALVOGEN-091999

PATIENT
  Age: 47 Year
  Sex: Female

DRUGS (3)
  1. PARACODINA [Concomitant]
     Active Substance: ASPIRIN\CAFFEINE\DIHYDROCODEINE BITARTRATE
     Indication: COUGH
     Dosage: 10,25 MG/ML , 15 DROPS
     Route: 048
     Dates: start: 20160608, end: 20160616
  2. LANSOPRAZOLE. [Concomitant]
     Active Substance: LANSOPRAZOLE
     Indication: PRODUCT USED FOR UNKNOWN INDICATION
     Route: 048
     Dates: start: 20160101, end: 20160617
  3. LISINOPRIL. [Suspect]
     Active Substance: LISINOPRIL
     Indication: HYPERTENSION
     Route: 048
     Dates: start: 20160101, end: 20160617

REACTIONS (1)
  - Apnoea [Not Recovered/Not Resolved]

NARRATIVE: CASE EVENT DATE: 20160608
